FAERS Safety Report 21383879 (Version 1)
Quarter: 2022Q3

REPORT INFORMATION
  Report Type: Report from Study
  Country: US (occurrence: US)
  Receive Date: 20220928
  Receipt Date: 20220928
  Transmission Date: 20221027
  Serious: Yes (Other)
  Sender: FDA-Public Use
  Company Number: US-ABBVIE-4131126

PATIENT
  Sex: Female

DRUGS (4)
  1. HUMIRA [Suspect]
     Active Substance: ADALIMUMAB
     Indication: Rheumatoid arthritis
     Route: 058
     Dates: start: 2012, end: 2017
  2. CIMZIA [Suspect]
     Active Substance: CERTOLIZUMAB PEGOL
     Indication: Product used for unknown indication
     Route: 065
     Dates: start: 2022
  3. PFIZER-BIONTECH COVID-19 VACCINE [Concomitant]
     Active Substance: TOZINAMERAN
     Indication: COVID-19 immunisation
     Dosage: 1 IN ONCE
     Route: 030
  4. PFIZER-BIONTECH COVID-19 VACCINE [Concomitant]
     Active Substance: TOZINAMERAN
     Indication: COVID-19 immunisation
     Dosage: 1 IN ONCE BOOSTER DOSE
     Route: 030

REACTIONS (11)
  - Shoulder operation [Unknown]
  - Mycobacterium tuberculosis complex test positive [Unknown]
  - Therapeutic product effect decreased [Not Recovered/Not Resolved]
  - Rash [Recovered/Resolved]
  - Therapeutic product effect decreased [Unknown]
  - Therapeutic product effect delayed [Unknown]
  - Memory impairment [Not Recovered/Not Resolved]
  - Fatigue [Not Recovered/Not Resolved]
  - Arthralgia [Not Recovered/Not Resolved]
  - Fall [Unknown]
  - Dyspnoea exertional [Unknown]

NARRATIVE: CASE EVENT DATE: 20170101
